FAERS Safety Report 20560522 (Version 5)
Quarter: 2022Q3

REPORT INFORMATION
  Report Type: Spontaneous
  Country: US (occurrence: US)
  Receive Date: 20220307
  Receipt Date: 20220922
  Transmission Date: 20221027
  Serious: Yes (Other)
  Sender: FDA-Public Use
  Company Number: US-RECORDATI-2022000852

PATIENT

DRUGS (34)
  1. ISTURISA [Suspect]
     Active Substance: OSILODROSTAT PHOSPHATE
     Indication: Pituitary-dependent Cushing^s syndrome
     Dosage: 1 MILLIGRAM, BID
     Route: 048
     Dates: start: 20210623, end: 2021
  2. ISTURISA [Suspect]
     Active Substance: OSILODROSTAT PHOSPHATE
     Dosage: 2 MILLIGRAM, BID
     Route: 048
     Dates: start: 20210707
  3. ISTURISA [Suspect]
     Active Substance: OSILODROSTAT PHOSPHATE
     Dosage: 2 MILLIGRAM, BID
     Route: 048
  4. ALPHA LIPOIC ACID [Concomitant]
     Active Substance: .ALPHA.-LIPOIC ACID
     Indication: Diabetes mellitus
     Dosage: 600 MILLIGRAM, BID
  5. ASPIRIN [Concomitant]
     Active Substance: ASPIRIN
     Indication: Prophylaxis
     Dosage: 81 MILLIGRAM
  6. VITAMIN B COMPLEX/B12 [VITAMIN B COMPLEX] [Concomitant]
     Indication: Fatigue
     Dosage: 1 TABLET EVERY DAY
  7. BETAMETHASONE [Concomitant]
     Active Substance: BETAMETHASONE
     Indication: Psoriasis
     Dosage: 0.05 PERCENT, BID
  8. BIOTIN [Concomitant]
     Active Substance: BIOTIN
     Indication: Dry mouth
     Dosage: 1 CAPSULE
  9. CALCIUM\MAGNESIUM\VITAMIN D\ZINC [Concomitant]
     Active Substance: CALCIUM\MAGNESIUM\VITAMIN D\ZINC
     Indication: Prophylaxis
     Dosage: 1 TABLET, QD
  10. CLINDAMYCIN PHOSPHATE [Concomitant]
     Active Substance: CLINDAMYCIN PHOSPHATE
     Indication: Skin ulcer
     Dosage: 0.1 PERCENT
  11. CLOBETASOL PROPIONATE [Concomitant]
     Active Substance: CLOBETASOL PROPIONATE
     Indication: Skin plaque
     Dosage: 0.05 PERCENT, BID (EXTERNALLY)
  12. DULOXETINE [Concomitant]
     Active Substance: DULOXETINE
     Indication: Neuralgia
     Dosage: 30 MILLIGRAM
  13. FLUOCINOLONE ACETONIDE [Concomitant]
     Active Substance: FLUOCINOLONE ACETONIDE
     Indication: Psoriasis
     Dosage: 0.01 PERCENT, PRN
  14. GRALISE [Concomitant]
     Active Substance: GABAPENTIN
     Indication: Neuralgia
     Dosage: 300 MILLIGRAM
  15. HUMULIN R [Concomitant]
     Active Substance: INSULIN HUMAN
     Indication: Product used for unknown indication
     Dosage: QUICK PEN 600 UNITS TID
     Route: 058
  16. HYOSCYAMINE [Concomitant]
     Active Substance: HYOSCYAMINE
     Indication: Abdominal pain
     Dosage: 0.125 MILLIGRAM, PRN
  17. KETOCONAZOLE [Concomitant]
     Active Substance: KETOCONAZOLE
     Indication: Dry skin
     Dosage: 2 PERCENT, QD
  18. LEVOTHYROXINE SODIUM [Concomitant]
     Active Substance: LEVOTHYROXINE SODIUM
     Indication: Dry skin
     Dosage: 150 MICROGRAM, QD
  19. LIOTHYRONINE SODIUM [Concomitant]
     Active Substance: LIOTHYRONINE SODIUM
     Indication: Hyperthyroidism
     Dosage: 5 MICROGRAM, BID
  20. MACUGEN [Concomitant]
     Active Substance: PEGAPTANIB SODIUM
     Indication: Macular degeneration
     Dosage: 0.3 MILLIGRAM, QD
     Route: 031
  21. MELOXICAM [Concomitant]
     Active Substance: MELOXICAM
     Indication: Myalgia
     Dosage: 15 UNK, PRN
  22. METFORMIN [Concomitant]
     Active Substance: METFORMIN HYDROCHLORIDE
     Indication: Diabetes mellitus
     Dosage: 500 UNK, BID
  23. MUPIROCIN [Concomitant]
     Active Substance: MUPIROCIN
     Indication: Wound
     Dosage: 2 PERCENT, QD
  24. PATADAY [Concomitant]
     Active Substance: OLOPATADINE HYDROCHLORIDE
     Indication: Seasonal allergy
     Dosage: 1 PERCENT, BID
     Route: 047
  25. PEPTO-BISMOL [Concomitant]
     Active Substance: BISMUTH SUBSALICYLATE
     Indication: Diarrhoea
     Dosage: 262 MILLIGRAM
  26. BALACET [Concomitant]
     Indication: Gastrooesophageal reflux disease
     Dosage: 20 MILLIGRAM
  27. ROSUVASTATIN [Concomitant]
     Active Substance: ROSUVASTATIN
     Indication: Blood cholesterol
     Dosage: 20 MILLIGRAM, QD (EVERY EVENING)
  28. COLLAGENASE SANTYL [Concomitant]
     Active Substance: COLLAGENASE CLOSTRIDIUM HISTOLYTICUM
     Indication: Pain in extremity
     Dosage: 250UNITS/GRAM; 71.5-119MG ORALLY FOR SUPPLEMENT MAGNESIUM
  29. STIMULEN [Concomitant]
     Indication: Wound
     Dosage: 1 PACK
  30. SUNOSI [Concomitant]
     Active Substance: SOLRIAMFETOL
     Indication: Fatigue
     Dosage: 37.5 MILLIGRAM
  31. TRAMADOL [Concomitant]
     Active Substance: TRAMADOL
     Indication: Back pain
     Dosage: 50 MILLIGRAM, PRN
  32. TRULICITY [Concomitant]
     Active Substance: DULAGLUTIDE
     Indication: Diabetes mellitus
     Dosage: 4.5MG/.5ML
     Route: 058
  33. CHOLECALCIFEROL [Concomitant]
     Active Substance: CHOLECALCIFEROL
     Indication: Hypovitaminosis
     Dosage: 1.25 MILLIGRAM
  34. ZOFRAN [Concomitant]
     Active Substance: ONDANSETRON HYDROCHLORIDE
     Indication: Nausea
     Dosage: 4 MILLIGRAM, PRN

REACTIONS (16)
  - Urinary tract infection [Not Recovered/Not Resolved]
  - Dizziness [Not Recovered/Not Resolved]
  - Nausea [Not Recovered/Not Resolved]
  - Fatigue [Recovering/Resolving]
  - Vomiting [Recovering/Resolving]
  - Urinary tract infection bacterial [Recovering/Resolving]
  - Blood glucose abnormal [Unknown]
  - Pain in extremity [Unknown]
  - Cortisol increased [Unknown]
  - Escherichia infection [Unknown]
  - Urinary tract infection [Unknown]
  - Headache [Recovering/Resolving]
  - Nausea [Unknown]
  - Dizziness [Unknown]
  - Off label use [Recovered/Resolved]
  - Product dose omission issue [Recovered/Resolved]

NARRATIVE: CASE EVENT DATE: 20210101
